FAERS Safety Report 9744346 (Version 1)
Quarter: 2013Q4

REPORT INFORMATION
  Report Type: Spontaneous
  Country: IT (occurrence: IT)
  Receive Date: 20131210
  Receipt Date: 20131210
  Transmission Date: 20140711
  Serious: Yes (Other)
  Sender: FDA-Public Use
  Company Number: IT-MYLANLABS-2013S1027021

PATIENT
  Age: 69 Year
  Sex: Female
  Weight: 85 kg

DRUGS (4)
  1. IRINOTECAN HYDROCHLORIDE TRIHYDRATE [Suspect]
     Indication: RECTAL ADENOCARCINOMA
     Dosage: CYCLIC
     Route: 042
     Dates: start: 20130514, end: 20130625
  2. AVASTIN /01555201/ [Concomitant]
     Indication: PRODUCT USED FOR UNKNOWN INDICATION
     Dates: start: 20130514, end: 20130709
  3. LEVOFOLINIC ACID [Concomitant]
     Indication: CHEMOTHERAPY
     Dates: start: 20130514, end: 20130809
  4. 5-FLUOROURACIL [Concomitant]
     Indication: CHEMOTHERAPY
     Dates: start: 20130514, end: 20130809

REACTIONS (1)
  - Hepatotoxicity [Unknown]
